FAERS Safety Report 8202263-3 (Version None)
Quarter: 2012Q1

REPORT INFORMATION
  Report Type: 
  Country: None (occurrence: None)
  Receive Date: 20120312
  Receipt Date: 20120302
  Transmission Date: 20120608
  Serious: Yes (Death, Hospitalization)
  Sender: FDA-Public Use
  Company Number: US-UCBSA-052788

PATIENT
  Age: 3 Year
  Sex: Female

DRUGS (5)
  1. VIMPAT [Suspect]
     Indication: EPILEPSY
     Dosage: REDUCED TO 5MG/KG/DAY
  2. VIMPAT [Suspect]
     Dosage: 5MG/KG/DAY
  3. KEPPRA [Suspect]
     Indication: CONVULSION
     Dosage: 100MG/KG/DAY
  4. VIMPAT [Suspect]
     Dosage: 7.5MG/KG/DAY
     Dates: start: 20101201
  5. DIAZEPAM [Concomitant]
     Indication: CONVULSION
     Route: 054

REACTIONS (17)
  - CONVULSION [None]
  - ACUTE HEPATIC FAILURE [None]
  - SELF INJURIOUS BEHAVIOUR [None]
  - HYPOTENSION [None]
  - STATUS EPILEPTICUS [None]
  - INFLUENZA [None]
  - DIARRHOEA [None]
  - BRAIN HERNIATION [None]
  - RENAL FAILURE ACUTE [None]
  - IRRITABILITY [None]
  - ABDOMINAL PAIN [None]
  - DECREASED APPETITE [None]
  - GRAND MAL CONVULSION [None]
  - TACHYARRHYTHMIA [None]
  - COAGULOPATHY [None]
  - ANGER [None]
  - IMPULSIVE BEHAVIOUR [None]
